FAERS Safety Report 9670315 (Version 2)
Quarter: 2013Q4

REPORT INFORMATION
  Report Type: Spontaneous
  Country: DE (occurrence: DE)
  Receive Date: 20131105
  Receipt Date: 20131105
  Transmission Date: 20140711
  Serious: Yes (Disabling)
  Sender: FDA-Public Use
  Company Number: DE-GILEAD-2013-0079019

PATIENT
  Sex: Male
  Weight: 81 kg

DRUGS (2)
  1. HEPSERA [Suspect]
     Indication: CHRONIC HEPATITIS B
     Dosage: 1 DF, QD
     Route: 048
  2. ZEFFIX [Suspect]
     Indication: CHRONIC HEPATITIS B
     Dosage: 1 DF, QD
     Route: 048

REACTIONS (1)
  - Penile curvature [Not Recovered/Not Resolved]
